FAERS Safety Report 5373657-9 (Version None)
Quarter: 2007Q2

REPORT INFORMATION
  Report Type: 
  Country: None (occurrence: None)
  Receive Date: 20070618
  Receipt Date: 20061127
  Transmission Date: 20071010
  Serious: Yes (Other)
  Sender: FDA-Public Use
  Company Number: US-2005-023154

PATIENT
  Age: 51 Year
  Sex: Male

DRUGS (2)
  1. FLUDARA [Suspect]
     Indication: CHRONIC LYMPHOCYTIC LEUKAEMIA
     Dosage: 25 MG/M2, CYCLES
     Dates: start: 20050601, end: 20051001
  2. PREDNISONE [Concomitant]

REACTIONS (1)
  - HYPOAESTHESIA [None]
